FAERS Safety Report 6683544-1 (Version None)
Quarter: 2010Q2

REPORT INFORMATION
  Report Type: 
  Country: None (occurrence: None)
  Receive Date: 20100413
  Receipt Date: 20100330
  Transmission Date: 20101027
  Serious: Yes (Hospitalization)
  Sender: FDA-Public Use
  Company Number: 009504

PATIENT
  Sex: Female

DRUGS (3)
  1. VIMPAT [Suspect]
     Indication: PARTIAL SEIZURES
     Dosage: ORAL
     Route: 048
     Dates: start: 20100101
  2. KEPPRA [Suspect]
     Indication: PARTIAL SEIZURES
     Dosage: ORAL
     Route: 048
     Dates: start: 20070101
  3. MESTINON [Concomitant]

REACTIONS (1)
  - MUSCULAR WEAKNESS [None]
